FAERS Safety Report 19648292 (Version 8)
Quarter: 2022Q1

REPORT INFORMATION
  Report Type: Spontaneous
  Country: US (occurrence: US)
  Receive Date: 20210802
  Receipt Date: 20220106
  Transmission Date: 20220424
  Serious: Yes (Other)
  Sender: FDA-Public Use
  Company Number: US-PFIZER INC-202100924168

PATIENT
  Age: 66 Year
  Sex: Male
  Weight: 60.78 kg

DRUGS (2)
  1. CHANTIX [Suspect]
     Active Substance: VARENICLINE TARTRATE
     Indication: Smoking cessation therapy
     Dosage: 1 MG, 2X/DAY (ONE TABLET IN THE MORNING AND ONE IN THE EVENING BY MOUTH)
     Route: 048
     Dates: start: 20210525, end: 202107
  2. OMEPRAZOLE [Concomitant]
     Active Substance: OMEPRAZOLE
     Indication: Gastrooesophageal reflux disease
     Dosage: 40 MG (ONE TABLET 2-3 TIMES A DAY)
     Dates: start: 2016

REACTIONS (18)
  - Haematochezia [Recovering/Resolving]
  - Self-injurious ideation [Unknown]
  - Gastric haemorrhage [Unknown]
  - Recalled product administered [Unknown]
  - Product contamination [Unknown]
  - Behaviour disorder [Unknown]
  - Mood swings [Unknown]
  - Eating disorder [Unknown]
  - Vomiting [Recovering/Resolving]
  - Headache [Unknown]
  - Decreased appetite [Unknown]
  - Gastrooesophageal reflux disease [Unknown]
  - Condition aggravated [Unknown]
  - Candida infection [Unknown]
  - Fatigue [Unknown]
  - Migraine [Unknown]
  - Dysphonia [Unknown]
  - Burning sensation [Unknown]

NARRATIVE: CASE EVENT DATE: 20210101
